FAERS Safety Report 8905421 (Version 2)
Quarter: 2012Q4

REPORT INFORMATION
  Report Type: 
  Country: JP (occurrence: JP)
  Receive Date: 20121109
  Receipt Date: 20121128
  Transmission Date: 20130627
  Serious: Yes (Other)
  Sender: FDA-Public Use
  Company Number: JP-B.I. PHARMACEUTICALS,INC./RIDGEFIELD-2012-BP-27443NB

PATIENT

DRUGS (1)
  1. MICARDIS [Suspect]
     Route: 065

REACTIONS (1)
  - Aplastic anaemia [Unknown]
